FAERS Safety Report 16705791 (Version 1)
Quarter: 2019Q3

REPORT INFORMATION
  Report Type: Report from Study
  Country: GB (occurrence: GB)
  Receive Date: 20190815
  Receipt Date: 20190815
  Transmission Date: 20191004
  Serious: Yes (Other)
  Sender: FDA-Public Use
  Company Number: PHHY2019GB187131

PATIENT
  Sex: Female

DRUGS (1)
  1. HYRIMOZ [Suspect]
     Active Substance: ADALIMUMAB-ADAZ
     Indication: CROHN^S DISEASE
     Dosage: UNK, Q2W (PRE-FILLED PEN)
     Route: 065
     Dates: start: 20190718

REACTIONS (4)
  - Hypoaesthesia [Unknown]
  - Urticaria [Unknown]
  - Diarrhoea [Unknown]
  - Night sweats [Unknown]
